FAERS Safety Report 9142298 (Version 1)
Quarter: 2013Q1

REPORT INFORMATION
  Report Type: Spontaneous
  Country: DE (occurrence: DE)
  Receive Date: 20130305
  Receipt Date: 20130305
  Transmission Date: 20140127
  Serious: Yes (Congenital Anomaly, Other)
  Sender: FDA-Public Use
  Company Number: DE-MYLANLABS-2013S1004089

PATIENT
  Sex: Male
  Weight: 1.86 kg

DRUGS (3)
  1. MYCOPHENOLATE [Suspect]
     Indication: PRODUCT USED FOR UNKNOWN INDICATION
     Route: 064
  2. PREDNISOLON [Concomitant]
     Indication: PRODUCT USED FOR UNKNOWN INDICATION
     Route: 064
  3. BETAMETHASONE [Concomitant]
     Indication: PRODUCT USED FOR UNKNOWN INDICATION
     Route: 064

REACTIONS (9)
  - Microtia [Unknown]
  - Atrial septal defect [Unknown]
  - External auditory canal atresia [Unknown]
  - Wolff-Parkinson-White syndrome [Unknown]
  - Congenital arterial malformation [Unknown]
  - Patent ductus arteriosus [Unknown]
  - Foetal heart rate deceleration [Unknown]
  - Premature baby [Unknown]
  - Foetal exposure during pregnancy [Unknown]
